FAERS Safety Report 4971206-8 (Version None)
Quarter: 2006Q1

REPORT INFORMATION
  Report Type: 
  Country: None (occurrence: None)
  Receive Date: 20060216
  Receipt Date: 20050318
  Transmission Date: 20060701
  Serious: Yes (Hospitalization)
  Sender: FDA-Public Use
  Company Number: 200503IM000087

PATIENT
  Age: 66 Year
  Sex: Male
  Weight: 78.9259 kg

DRUGS (13)
  1. BLINDED THERAPY (INTERFERON GAMMA-1B) [Suspect]
     Indication: IDIOPATHIC PULMONARY FIBROSIS
     Dosage: SEE IMAGE
     Route: 058
     Dates: start: 20050315, end: 20050315
  2. BLINDED THERAPY (INTERFERON GAMMA-1B) [Suspect]
     Indication: IDIOPATHIC PULMONARY FIBROSIS
     Dosage: SEE IMAGE
     Route: 058
     Dates: start: 20050329
  3. TUSSIONEX [Suspect]
     Indication: COUGH
     Dosage: 0.5 ML,  BID, ORAL
     Route: 048
     Dates: start: 20050315, end: 20050318
  4. LEVOTHYROXINE SODIUM [Concomitant]
  5. HYZAAR [Concomitant]
  6. FLOMAX [Concomitant]
  7. TOPROL-XL [Concomitant]
  8. LIPITOR [Concomitant]
  9. VITAMIN E [Concomitant]
  10. CALCIUM + MAGNESIUM [Concomitant]
  11. FLAX SEED OIL [Concomitant]
  12. ASPIRIN [Concomitant]
  13. GLUCOSAMINE CHONDROITIN [Concomitant]

REACTIONS (1)
  - CONFUSIONAL STATE [None]
